FAERS Safety Report 20029592 (Version 7)
Quarter: 2024Q3

REPORT INFORMATION
  Report Type: Report from Study
  Country: US (occurrence: US)
  Receive Date: 20211103
  Receipt Date: 20240724
  Transmission Date: 20241016
  Serious: Yes (Other)
  Sender: JAZZ
  Company Number: US-JAZZ-2021-US-019541

PATIENT

DRUGS (16)
  1. XYWAV [Suspect]
     Active Substance: CALCIUM OXYBATE\MAGNESIUM OXYBATE\POTASSIUM OXYBATE\SODIUM OXYBATE
     Indication: Narcolepsy
     Dosage: 2.25 GRAM, BID FIRST DOSE
     Route: 048
     Dates: start: 20211010, end: 202111
  2. XYWAV [Suspect]
     Active Substance: CALCIUM OXYBATE\MAGNESIUM OXYBATE\POTASSIUM OXYBATE\SODIUM OXYBATE
     Indication: Cataplexy
     Dosage: 3 GRAM, BID SECOND DOSE
     Route: 048
     Dates: start: 202110, end: 202111
  3. XYWAV [Suspect]
     Active Substance: CALCIUM OXYBATE\MAGNESIUM OXYBATE\POTASSIUM OXYBATE\SODIUM OXYBATE
     Indication: Somnolence
     Dosage: 3.75 GRAM, BID THIRD DOSE
     Route: 048
     Dates: start: 202110, end: 202111
  4. CELECOXIB [Concomitant]
     Active Substance: CELECOXIB
     Indication: Product used for unknown indication
     Dosage: 0000
     Dates: start: 20211005
  5. PAXIL [Concomitant]
     Active Substance: PAROXETINE HYDROCHLORIDE
     Indication: Product used for unknown indication
  6. SUDAFED PE CONGESTION [Concomitant]
     Active Substance: PHENYLEPHRINE HYDROCHLORIDE
     Indication: Product used for unknown indication
     Dosage: UNK
     Dates: start: 20220107
  7. CLINDAMYCIN PHOSPHATE [Concomitant]
     Active Substance: CLINDAMYCIN PHOSPHATE
     Indication: Product used for unknown indication
     Dosage: 1 PERCENT
     Dates: start: 20220223
  8. BENZOYL PEROXIDE [Concomitant]
     Active Substance: BENZOYL PEROXIDE
     Indication: Product used for unknown indication
     Dosage: UNK
     Dates: start: 20220223
  9. METRONIDAZOLE [Concomitant]
     Active Substance: METRONIDAZOLE
     Indication: Product used for unknown indication
     Dosage: UNK
     Dates: start: 20220223
  10. KETOCONAZOLE [Concomitant]
     Active Substance: KETOCONAZOLE
     Indication: Product used for unknown indication
     Dosage: UNK
     Dates: start: 20220223
  11. MOMETASONE FUROATE [Concomitant]
     Active Substance: MOMETASONE FUROATE
     Indication: Product used for unknown indication
     Dosage: UNK
     Dates: start: 20220223
  12. TRILEPTAL [Concomitant]
     Active Substance: OXCARBAZEPINE
     Indication: Product used for unknown indication
     Dosage: UNK
     Dates: start: 20230818
  13. LEVOTHYROXINE [Concomitant]
     Active Substance: LEVOTHYROXINE\LEVOTHYROXINE SODIUM
     Indication: Product used for unknown indication
     Dosage: UNK
     Dates: start: 20230801
  14. GABAPENTIN [Concomitant]
     Active Substance: GABAPENTIN
     Indication: Product used for unknown indication
     Dosage: UNK
     Dates: start: 20231230
  15. QELBREE [Concomitant]
     Active Substance: VILOXAZINE HYDROCHLORIDE
     Indication: Product used for unknown indication
     Dosage: UNK
  16. QULIPTA [Concomitant]
     Active Substance: ATOGEPANT
     Indication: Product used for unknown indication
     Dosage: UNK

REACTIONS (34)
  - Ankle operation [Unknown]
  - Bruxism [Unknown]
  - Sleep paralysis [Unknown]
  - Pain in jaw [Not Recovered/Not Resolved]
  - Joint injury [Not Recovered/Not Resolved]
  - Sinus disorder [Unknown]
  - Feeling abnormal [Unknown]
  - Feeling drunk [Unknown]
  - Anxiety [Unknown]
  - Nightmare [Unknown]
  - Sleep terror [Unknown]
  - Hyperventilation [Unknown]
  - Nausea [Unknown]
  - Diarrhoea [Unknown]
  - Illness [Unknown]
  - Bursitis [Unknown]
  - Palpitations [Unknown]
  - Abdominal rigidity [Unknown]
  - Fatigue [Unknown]
  - Dehydration [Unknown]
  - Dysphonia [Unknown]
  - Tremor [Unknown]
  - Hypotension [Unknown]
  - Cough [Not Recovered/Not Resolved]
  - Sneezing [Not Recovered/Not Resolved]
  - Tongue coated [Not Recovered/Not Resolved]
  - Localised infection [Unknown]
  - Sinus headache [Not Recovered/Not Resolved]
  - Upper-airway cough syndrome [Unknown]
  - Sensation of foreign body [Not Recovered/Not Resolved]
  - Yawning [Unknown]
  - Wrong technique in product usage process [Unknown]
  - Intentional dose omission [Unknown]
  - Therapy interrupted [Unknown]

NARRATIVE: CASE EVENT DATE: 20211012
